FAERS Safety Report 7746355-1 (Version None)
Quarter: 2011Q3

REPORT INFORMATION
  Report Type: 
  Country: None (occurrence: None)
  Receive Date: 20110913
  Receipt Date: 20110731
  Transmission Date: 20111222
  Serious: Yes (Other)
  Sender: FDA-Public Use
  Company Number: PS-AMGEN-PSESP2011046048

PATIENT
  Age: 52 Year
  Sex: Male

DRUGS (9)
  1. ENBREL [Suspect]
     Indication: RHEUMATOID ARTHRITIS
     Dosage: 25 MG, TWICE WEEKLY
     Route: 058
     Dates: start: 20110501, end: 20110728
  2. PREDNISONE [Concomitant]
     Dosage: 20MG, DAILY
     Dates: start: 20101201
  3. PLAQUENIL [Concomitant]
     Dosage: 400 MG, UNK
     Dates: start: 20101201
  4. RANITIDINE [Concomitant]
     Dosage: 150 MG, UNK
     Dates: start: 20110501
  5. METHOTREXATE SODIUM [Concomitant]
     Dosage: 20 MG, UNK
  6. MELOXICAM [Concomitant]
     Dosage: 15 MG, UNK
     Dates: start: 20101201
  7. METHOTREXATE SODIUM [Concomitant]
     Dosage: 15 MG, UNK
     Dates: start: 20101201
  8. FOLIC ACID [Concomitant]
     Dosage: UNK
     Dates: start: 20101201
  9. PREDNISONE [Concomitant]
     Dosage: 7.5 MG, UNK
     Dates: start: 20110501

REACTIONS (2)
  - SACROILIITIS [None]
  - SKIN DISORDER [None]
